FAERS Safety Report 5885388-7 (Version None)
Quarter: 2008Q3

REPORT INFORMATION
  Report Type: 
  Country: None (occurrence: None)
  Receive Date: 20080916
  Receipt Date: 20080904
  Transmission Date: 20090109
  Serious: Yes (Other)
  Sender: FDA-Public Use
  Company Number: FR-PFIZER INC-2008075752

PATIENT
  Age: 59 Year
  Sex: Male

DRUGS (1)
  1. CHANTIX [Suspect]

REACTIONS (4)
  - CONSTIPATION [None]
  - HAEMATURIA [None]
  - NAUSEA [None]
  - URINARY TRACT INFECTION [None]
